FAERS Safety Report 8258568-3 (Version None)
Quarter: 2012Q2

REPORT INFORMATION
  Report Type: 
  Country: None (occurrence: None)
  Receive Date: 20120404
  Receipt Date: 20120327
  Transmission Date: 20120825
  Serious: Yes (Hospitalization, Other)
  Sender: FDA-Public Use
  Company Number: JP-ASTELLAS-2012JP002148

PATIENT
  Sex: Male
  Weight: 37.85 kg

DRUGS (23)
  1. PROGRAF [Suspect]
     Indication: GRAFT VERSUS HOST DISEASE
     Dosage: 0.55 MG, CONTINUOUS
     Route: 041
     Dates: start: 20101012, end: 20101103
  2. PROGRAF [Suspect]
     Dosage: 0.33 MG, CONTINUOUS
     Route: 041
     Dates: start: 20101104, end: 20101213
  3. MULTAMIN [Concomitant]
     Dosage: 1 DF, CONTINUOUS
     Route: 041
     Dates: start: 20101018, end: 20101215
  4. METHOTREXATE [Concomitant]
     Dosage: 12 MG, UID/QD
     Route: 042
     Dates: start: 20101016, end: 20101016
  5. METHOTREXATE [Concomitant]
     Dosage: 12 MG, UID/QD
     Route: 042
     Dates: start: 20101024, end: 20101024
  6. PREDNISOLONE [Concomitant]
     Indication: ACUTE GRAFT VERSUS HOST DISEASE
     Dosage: 2 MG/KG, UNKNOWN/D
     Route: 065
  7. FUNGUARD [Concomitant]
     Indication: FEBRILE NEUTROPENIA
     Dosage: 200 MG, UID/QD
     Route: 041
     Dates: start: 20100726, end: 20101213
  8. METHOTREXATE [Concomitant]
     Indication: GRAFT VERSUS HOST DISEASE
     Dosage: 18 MG, UID/QD
     Route: 042
     Dates: start: 20101014, end: 20101014
  9. METHOTREXATE [Concomitant]
     Dosage: 12 MG, UID/QD
     Route: 042
     Dates: start: 20101019, end: 20101019
  10. GRAN [Concomitant]
     Indication: ALLOGENIC BONE MARROW TRANSPLANTATION THERAPY
     Dosage: 375 MG, UID/QD
     Route: 042
     Dates: start: 20101018, end: 20101104
  11. PREDNISOLONE [Concomitant]
     Indication: GRAFT VERSUS HOST DISEASE
     Dosage: 18 MG, TID
     Route: 042
     Dates: start: 20101025
  12. ALPRAZOLAM [Concomitant]
     Indication: INSOMNIA
     Dosage: 0.4 MG, UID/QD
     Route: 048
     Dates: start: 20101103, end: 20110105
  13. NADIC [Concomitant]
     Indication: TACHYCARDIA
     Dosage: 10 MG, BID
     Route: 048
     Dates: start: 20101103, end: 20101119
  14. CYCLOPHOSPHAMIDE [Concomitant]
     Indication: BONE MARROW CONDITIONING REGIMEN
     Route: 065
  15. FRAGMIN [Concomitant]
     Dosage: 3000 IU, CONTINUOUS
     Route: 041
     Dates: start: 20101006, end: 20101125
  16. FAMOTIDINE [Concomitant]
     Indication: PROPHYLAXIS AGAINST GASTROINTESTINAL ULCER
     Dosage: 20 MG, BID
     Route: 042
     Dates: start: 20101013, end: 20101115
  17. EPINASTINE HYDROCHLORIDE [Concomitant]
     Indication: PRURITUS
     Dosage: 10 MG, BID
     Route: 048
     Dates: start: 20101103, end: 20101202
  18. CARBENIN [Concomitant]
     Indication: FEBRILE NEUTROPENIA
     Dosage: 0.5 G, QID
     Route: 041
     Dates: start: 20101023, end: 20101108
  19. ZOVIRAX [Concomitant]
     Dosage: 100 MG, BID
     Route: 041
     Dates: start: 20101014, end: 20101213
  20. FENTANYL [Concomitant]
     Indication: MUCOUS MEMBRANE DISORDER
     Dosage: 0.6 MG, CONTINUOUS
     Route: 041
     Dates: start: 20101018, end: 20101123
  21. TARGOCID [Concomitant]
     Indication: FEBRILE NEUTROPENIA
     Dosage: 350 MG, UID/QD
     Route: 041
     Dates: start: 20100909, end: 20101108
  22. ELEMENMIC [Concomitant]
     Dosage: 2 ML, CONTINUOUS
     Route: 041
     Dates: start: 20101018, end: 20101215
  23. ADALAT [Concomitant]
     Indication: HYPERTENSION
     Dosage: 10 MG, BID
     Route: 048
     Dates: start: 20101103, end: 20101223

REACTIONS (8)
  - MUCOUS MEMBRANE DISORDER [None]
  - MEMORY IMPAIRMENT [None]
  - ACUTE GRAFT VERSUS HOST DISEASE [None]
  - ENCEPHALITIS HERPES [None]
  - PRURITUS [None]
  - TACHYCARDIA [None]
  - DRUG INEFFECTIVE [None]
  - HYPERTENSION [None]
